FAERS Safety Report 6313741-6 (Version None)
Quarter: 2009Q3

REPORT INFORMATION
  Report Type: 
  Country: None (occurrence: None)
  Receive Date: 20090817
  Receipt Date: 20090817
  Transmission Date: 20100115
  Serious: Yes (Hospitalization, Other)
  Sender: FDA-Public Use
  Company Number: None

PATIENT
  Age: 45 Year
  Sex: Male
  Weight: 100 kg

DRUGS (1)
  1. CAVERJECT [Suspect]
     Indication: PARAPLEGIA
     Dosage: 5 DAILY INTRAVESICAL
     Route: 043

REACTIONS (4)
  - DEVICE FAILURE [None]
  - ERECTION INCREASED [None]
  - PAIN [None]
  - PRODUCT QUALITY ISSUE [None]
